FAERS Safety Report 7138792-3 (Version None)
Quarter: 2010Q4

REPORT INFORMATION
  Report Type: 
  Country: None (occurrence: None)
  Receive Date: 20101202
  Receipt Date: 20101202
  Transmission Date: 20110411
  Serious: Yes (Other)
  Sender: FDA-Public Use
  Company Number: None

PATIENT
  Sex: Female
  Weight: 90.7194 kg

DRUGS (2)
  1. LEVOTHROID [Suspect]
     Indication: BASEDOW'S DISEASE
     Dosage: ALL STRENGTHS EXCEPT 50 MCG DAILY TO TID PO (OVER MULTIPLE YEARS)
     Route: 048
  2. LEVOTHROID [Suspect]
     Indication: POST PROCEDURAL HYPOTHYROIDISM
     Dosage: ALL STRENGTHS EXCEPT 50 MCG DAILY TO TID PO (OVER MULTIPLE YEARS)
     Route: 048

REACTIONS (5)
  - BLOOD DISORDER [None]
  - HYPERSENSITIVITY [None]
  - MIGRAINE [None]
  - PRODUCT SUBSTITUTION ISSUE [None]
  - REACTION TO AZO-DYES [None]
